FAERS Safety Report 10591291 (Version 2)
Quarter: 2014Q4

REPORT INFORMATION
  Report Type: Report from Study
  Country: BR (occurrence: BR)
  Receive Date: 20141118
  Receipt Date: 20141222
  Transmission Date: 20150529
  Serious: Yes (Hospitalization)
  Sender: FDA-Public Use
  Company Number: BR-SA-2014SA155483

PATIENT
  Sex: Female

DRUGS (7)
  1. LANTUS [Suspect]
     Active Substance: INSULIN GLARGINE
     Indication: TYPE 2 DIABETES MELLITUS
     Route: 058
     Dates: start: 2004
  2. ALL OTHER THERAPEUTIC PRODUCTS [Concomitant]
     Active Substance: UNSPECIFIED INGREDIENT
     Indication: DECUBITUS ULCER
     Route: 061
  3. PURAN [Concomitant]
     Active Substance: LEVOTHYROXINE SODIUM
     Indication: HYPOTHYROIDISM
     Route: 048
  4. AMOROLFINE [Concomitant]
     Active Substance: AMOROLFINE
     Indication: ONYCHOMYCOSIS
     Route: 061
  5. DERMODEX [Concomitant]
     Route: 061
  6. AUTOPEN 24 [Concomitant]
     Active Substance: DEVICE
     Indication: DEVICE THERAPY
  7. DEXTRAN/HYPROMELLOSE [Concomitant]
     Indication: EYE DISORDER
     Route: 061

REACTIONS (5)
  - Eating disorder [Unknown]
  - Medication error [Unknown]
  - Urinary tract infection [Not Recovered/Not Resolved]
  - Speech disorder [Unknown]
  - Gait disturbance [Unknown]
